FAERS Safety Report 8487650-0 (Version None)
Quarter: 2012Q3

REPORT INFORMATION
  Report Type: 
  Country: None (occurrence: None)
  Receive Date: 20120705
  Receipt Date: 20120625
  Transmission Date: 20120928
  Serious: Yes (Hospitalization)
  Sender: FDA-Public Use
  Company Number: US-BAYER-2012-061883

PATIENT
  Age: 30 Year
  Sex: Female
  Weight: 113.38 kg

DRUGS (2)
  1. YAZ [Suspect]
     Indication: CONTRACEPTION
     Dosage: UNK
     Dates: start: 20091021, end: 20100614
  2. YAZ [Suspect]
     Indication: PREMENSTRUAL SYNDROME

REACTIONS (2)
  - TRANSIENT ISCHAEMIC ATTACK [None]
  - INJURY [None]
